FAERS Safety Report 9991472 (Version 1)
Quarter: 2014Q1

REPORT INFORMATION
  Report Type: Report from Study
  Country: US (occurrence: US)
  Receive Date: 20140310
  Receipt Date: 20140310
  Transmission Date: 20141002
  Serious: No
  Sender: FDA-Public Use
  Company Number: US-ABBVIE-13P-163-1133590-00

PATIENT
  Sex: Female

DRUGS (8)
  1. HUMIRA [Suspect]
     Indication: CROHN^S DISEASE
  2. HUMIRA [Suspect]
     Dosage: 40 MILLIGRAMS EVERY WEEK
  3. ASACOL HD [Concomitant]
     Indication: CROHN^S DISEASE
     Dosage: 3 PILLS EVERY DAY
  4. CALCIUM D [Concomitant]
     Indication: PRODUCT USED FOR UNKNOWN INDICATION
     Dosage: DAILY
  5. MULTIVITAMIN [Concomitant]
     Indication: PRODUCT USED FOR UNKNOWN INDICATION
     Dosage: DAILY
  6. ZYRTEC [Concomitant]
     Indication: HYPERSENSITIVITY
     Dosage: EVERY DAY
  7. DULERA [Concomitant]
     Indication: ASTHMA
     Dosage: DAILY
  8. ALBUTEROL [Concomitant]
     Indication: ASTHMA

REACTIONS (2)
  - Rheumatoid arthritis [Recovered/Resolved]
  - Ankylosing spondylitis [Recovered/Resolved]
